FAERS Safety Report 6800579-6 (Version None)
Quarter: 2010Q2

REPORT INFORMATION
  Report Type: 
  Country: None (occurrence: None)
  Receive Date: 20100625
  Receipt Date: 20100625
  Transmission Date: 20101027
  Serious: Yes (Other)
  Sender: FDA-Public Use
  Company Number: None

PATIENT
  Age: 36 Year
  Sex: Female
  Weight: 61.2356 kg

DRUGS (1)
  1. AZURETTE [Suspect]
     Indication: CONTRACEPTION
     Dosage: DAILY  (ALMOST A YEAR)
     Dates: start: 20090802, end: 20100603

REACTIONS (5)
  - AGGRESSION [None]
  - ANGER [None]
  - HYPERSOMNIA [None]
  - SCREAMING [None]
  - WEIGHT INCREASED [None]
